FAERS Safety Report 23522075 (Version 1)
Quarter: 2024Q1

REPORT INFORMATION
  Report Type: Spontaneous
  Country: US (occurrence: None)
  Receive Date: 20240213
  Receipt Date: 20240213
  Transmission Date: 20240410
  Serious: Yes (Hospitalization)
  Sender: FDA-Public Use
  Company Number: None

PATIENT
  Age: 66 Year
  Sex: Female

DRUGS (20)
  1. TRABECTEDIN [Suspect]
     Active Substance: TRABECTEDIN
     Indication: Malignant connective tissue neoplasm
  2. TRABECTEDIN [Suspect]
     Active Substance: TRABECTEDIN
     Indication: Soft tissue sarcoma
  3. TRABECTEDIN [Suspect]
     Active Substance: TRABECTEDIN
  4. ALKA-SELTZER PLUS COLD + [Concomitant]
  5. GUAIFENESIN AND CODEINE PHOSPHATE [Concomitant]
     Active Substance: CODEINE PHOSPHATE\GUAIFENESIN
  6. GABAPENTIN [Concomitant]
     Active Substance: GABAPENTIN
  7. SINGULAIR [Concomitant]
     Active Substance: MONTELUKAST SODIUM
  8. ELIQUIS [Concomitant]
     Active Substance: APIXABAN
  9. OMEPRAZOLE [Concomitant]
     Active Substance: OMEPRAZOLE
  10. ZOLOFT [Concomitant]
     Active Substance: SERTRALINE HYDROCHLORIDE
  11. VITAMINS [Concomitant]
     Active Substance: VITAMINS
  12. CALCIUM [Concomitant]
     Active Substance: CALCIUM
  13. VITAMIN D [Concomitant]
     Active Substance: VITAMIN D NOS
  14. PREDNISONE [Concomitant]
     Active Substance: PREDNISONE
  15. ONDANSETRON HYDROCHLORIDE [Concomitant]
     Active Substance: ONDANSETRON HYDROCHLORIDE
  16. BACTRIM DS [Concomitant]
     Active Substance: SULFAMETHOXAZOLE\TRIMETHOPRIM
  17. LEVOTHYROXINE SODIUM [Concomitant]
     Active Substance: LEVOTHYROXINE SODIUM
  18. CELLCEPT [Concomitant]
     Active Substance: MYCOPHENOLATE MOFETIL
  19. AVASTIN [Suspect]
     Active Substance: BEVACIZUMAB
  20. OPDIVO [Suspect]
     Active Substance: NIVOLUMAB

REACTIONS (4)
  - Blood pressure increased [None]
  - Pneumonitis [None]
  - Nausea [None]
  - Metastases to lung [None]

NARRATIVE: CASE EVENT DATE: 20240212
